FAERS Safety Report 7025089-5 (Version None)
Quarter: 2010Q4

REPORT INFORMATION
  Report Type: 
  Country: None (occurrence: None)
  Receive Date: 20101001
  Receipt Date: 20100920
  Transmission Date: 20110411
  Serious: Yes (Other)
  Sender: FDA-Public Use
  Company Number: US-SANOFI-AVENTIS-2010SA057579

PATIENT
  Age: 73 Year
  Sex: Female

DRUGS (3)
  1. OPTICLICK [Suspect]
  2. LANTUS [Suspect]
     Dosage: DOSE:30 UNIT(S)
     Route: 058
  3. ANTIBIOTICS [Concomitant]

REACTIONS (3)
  - BLOOD GLUCOSE INCREASED [None]
  - PNEUMONIA PRIMARY ATYPICAL [None]
  - PRODUCT QUALITY ISSUE [None]
